FAERS Safety Report 6382249-4 (Version None)
Quarter: 2009Q3

REPORT INFORMATION
  Report Type: 
  Country: None (occurrence: None)
  Receive Date: 20090928
  Receipt Date: 20090928
  Transmission Date: 20100115
  Serious: Yes (Other)
  Sender: FDA-Public Use
  Company Number: None

PATIENT
  Age: 76 Year
  Sex: Female
  Weight: 52.6173 kg

DRUGS (3)
  1. ACYCLOVIR [Suspect]
     Indication: ERYTHEMA
     Dosage: 800 MG 5 TIMES A DAY
     Dates: start: 20090831, end: 20090906
  2. ACYCLOVIR [Suspect]
     Indication: HERPES ZOSTER
     Dosage: 800 MG 5 TIMES A DAY
     Dates: start: 20090831, end: 20090906
  3. ACYCLOVIR [Suspect]
     Indication: PRURITUS
     Dosage: 800 MG 5 TIMES A DAY
     Dates: start: 20090831, end: 20090906

REACTIONS (2)
  - ABDOMINAL PAIN UPPER [None]
  - FREQUENT BOWEL MOVEMENTS [None]
